FAERS Safety Report 6421995-0 (Version None)
Quarter: 2009Q4

REPORT INFORMATION
  Report Type: 
  Country: None (occurrence: None)
  Receive Date: 20091030
  Receipt Date: 20091027
  Transmission Date: 20100525
  Serious: Yes (Other)
  Sender: FDA-Public Use
  Company Number: FR-ROXANE LABORATORIES, INC.-2009-RO-01102RO

PATIENT
  Age: 48 Year
  Sex: Male

DRUGS (7)
  1. LITHIUM CARBONATE [Suspect]
  2. TEMESTA [Concomitant]
     Indication: CONVULSION
     Route: 048
  3. DEPAKENE [Concomitant]
     Indication: CONVULSION
     Dosage: 1000 MG
  4. SOLIAN [Concomitant]
     Indication: CONVULSION
  5. DIAZEPAM [Concomitant]
     Indication: CONVULSION
     Route: 042
  6. CARBAMAZEPINE [Concomitant]
     Indication: CONVULSION
  7. CARBAMAZEPINE [Concomitant]
     Indication: MOOD SWINGS

REACTIONS (10)
  - CEREBRAL CALCIFICATION [None]
  - CONVULSION [None]
  - GLOMERULONEPHRITIS CHRONIC [None]
  - INTERVERTEBRAL DISC DISORDER [None]
  - NEPHROSCLEROSIS [None]
  - PARTIAL SEIZURES [None]
  - POLYDIPSIA [None]
  - PULMONARY MASS [None]
  - SLEEP APNOEA SYNDROME [None]
  - THERAPEUTIC AGENT TOXICITY [None]
